FAERS Safety Report 11290521 (Version 1)
Quarter: 2015Q3

REPORT INFORMATION
  Report Type: Spontaneous
  Country: US (occurrence: US)
  Receive Date: 20150722
  Receipt Date: 20150722
  Transmission Date: 20151125
  Serious: Yes (Hospitalization)
  Sender: FDA-Public Use
  Company Number: US-ABBVIE-15K-163-1427886-00

PATIENT
  Sex: Female

DRUGS (1)
  1. HUMIRA [Suspect]
     Active Substance: ADALIMUMAB
     Indication: PSORIASIS
     Dosage: ONLY ONE DOSE
     Route: 065
     Dates: start: 2015, end: 2015

REACTIONS (4)
  - Aphasia [Unknown]
  - Headache [Unknown]
  - Parapsoriasis [Not Recovered/Not Resolved]
  - Rash generalised [Unknown]

NARRATIVE: CASE EVENT DATE: 2015
